FAERS Safety Report 9259269 (Version 1)
Quarter: 2013Q2

REPORT INFORMATION
  Report Type: Spontaneous
  Country: US (occurrence: US)
  Receive Date: 20130426
  Receipt Date: 20130426
  Transmission Date: 20140414
  Serious: No
  Sender: FDA-Public Use
  Company Number: US-009507513-1304USA014901

PATIENT
  Age: 47 Year
  Sex: Female
  Weight: 71.2 kg

DRUGS (2)
  1. NUVARING [Suspect]
     Indication: CONTRACEPTION
     Dosage: 1 RING, FOR 3 WEEKS FOLLOWED BY A WEEK FREE BREAK
     Route: 067
     Dates: start: 20130419
  2. VITAMINS (UNSPECIFIED) [Concomitant]

REACTIONS (2)
  - Amenorrhoea [Unknown]
  - Device expulsion [Unknown]
